FAERS Safety Report 4932910-0 (Version None)
Quarter: 2006Q1

REPORT INFORMATION
  Report Type: 
  Country: None (occurrence: None)
  Receive Date: 20060301
  Receipt Date: 20060221
  Transmission Date: 20060701
  Serious: Yes (Death)
  Sender: FDA-Public Use
  Company Number: USA-2006-0023657

PATIENT
  Age: 55 Year
  Sex: Male

DRUGS (4)
  1. MORPHINE SULFATE [Suspect]
  2. METHADONE (METHADONE) [Suspect]
  3. BUPROPION (AMFEBUTAMONE) [Suspect]
  4. DIPHENHYDRAMINE (DIPHENHYDRAMINE) [Suspect]

REACTIONS (4)
  - ACCIDENTAL DEATH [None]
  - DIABETES MELLITUS [None]
  - DRUG TOXICITY [None]
  - KETOSIS [None]
